FAERS Safety Report 8002611-3 (Version None)
Quarter: 2011Q4

REPORT INFORMATION
  Report Type: 
  Country: None (occurrence: None)
  Receive Date: 20111222
  Receipt Date: 20111221
  Transmission Date: 20120403
  Serious: Yes (Other)
  Sender: FDA-Public Use
  Company Number: US-GLAXOSMITHKLINE-A0958939A

PATIENT
  Sex: Female

DRUGS (1)
  1. VALTREX [Suspect]

REACTIONS (6)
  - ASTHENIA [None]
  - HYPERSOMNIA [None]
  - VAGINAL HAEMORRHAGE [None]
  - DIARRHOEA [None]
  - PANIC REACTION [None]
  - AGITATION [None]
